FAERS Safety Report 9354768 (Version 1)
Quarter: 2013Q2

REPORT INFORMATION
  Report Type: Report from Study
  Country: US (occurrence: US)
  Receive Date: 20130619
  Receipt Date: 20130619
  Transmission Date: 20140414
  Serious: Yes (Hospitalization)
  Sender: FDA-Public Use
  Company Number: US-009507513-1306USA005096

PATIENT
  Age: 64 Year
  Sex: Male
  Weight: 90.25 kg

DRUGS (14)
  1. VICTRELIS [Suspect]
     Indication: CHRONIC HEPATITIS C
     Dosage: 800 MG, TID
     Route: 048
     Dates: start: 20130114, end: 20130430
  2. REBETOL [Suspect]
     Indication: CHRONIC HEPATITIS C
     Dosage: 600 MG, QD
     Route: 048
     Dates: start: 20130114, end: 20130430
  3. PEGASYS [Suspect]
     Indication: CHRONIC HEPATITIS C
     Dosage: 180 MICROGRAM, QW
     Dates: start: 20130114, end: 20130430
  4. DULOXETINE HYDROCHLORIDE [Concomitant]
     Dosage: UNK
     Dates: start: 20060101
  5. DICLOFENAC SODIUM [Concomitant]
     Dosage: UNK
     Dates: start: 20121017
  6. HYDROCHLOROTHIAZIDE (+) LOSARTAN POTASSIUM [Concomitant]
     Dosage: UNK
     Dates: start: 20100101
  7. ZOLPIDEM TARTRATE [Concomitant]
     Dosage: UNK
     Dates: start: 20050101
  8. INSULIN GLARGINE [Concomitant]
     Dosage: UNK
     Dates: start: 20090101
  9. CITALOPRAM HYDROBROMIDE [Concomitant]
     Dosage: UNK
     Dates: start: 20130418
  10. DILTIAZEM HYDROCHLORIDE [Concomitant]
     Dosage: UNK
     Dates: start: 20120101
  11. OXYCODONE [Concomitant]
     Dosage: UNK
     Dates: start: 20080101
  12. INSULIN ASPART [Concomitant]
     Dosage: UNK
     Dates: start: 20020101
  13. ATORVASTATIN [Concomitant]
     Dosage: UNK
     Dates: start: 20090101
  14. PIOGLITAZONE HYDROCHLORIDE [Concomitant]
     Dosage: UNK
     Dates: start: 20100101

REACTIONS (1)
  - Depression [Recovered/Resolved]
